FAERS Safety Report 9596892 (Version 4)
Quarter: 2013Q4

REPORT INFORMATION
  Report Type: Report from Study
  Country: FR (occurrence: FR)
  Receive Date: 20131004
  Receipt Date: 20131105
  Transmission Date: 20140711
  Serious: Yes (Death)
  Sender: FDA-Public Use
  Company Number: FR-CELGENEUS-056-C4047-13081212

PATIENT
  Age: 56 Year
  Sex: Male
  Weight: 64 kg

DRUGS (4)
  1. CC-4047 [Suspect]
     Indication: PLASMA CELL MYELOMA
     Dosage: 4 MILLIGRAM
     Route: 048
     Dates: start: 20130329, end: 20130622
  2. DEXAMETHASONE [Concomitant]
     Indication: PLASMA CELL MYELOMA
     Route: 065
     Dates: start: 20130329
  3. DEXAMETHASONE [Concomitant]
     Route: 065
  4. KARDEGIC [Concomitant]
     Indication: THROMBOSIS PROPHYLAXIS
     Dosage: 160 MILLIGRAM
     Route: 065
     Dates: start: 20130329

REACTIONS (1)
  - Plasma cell myeloma [Fatal]
